FAERS Safety Report 6754166-9 (Version None)
Quarter: 2010Q2

REPORT INFORMATION
  Report Type: 
  Country: None (occurrence: None)
  Receive Date: 20100603
  Receipt Date: 20100521
  Transmission Date: 20101027
  Serious: Yes (Disabling, Other)
  Sender: FDA-Public Use
  Company Number: PHHY2010FR18852

PATIENT
  Age: 58 Year
  Sex: Female

DRUGS (6)
  1. LESCOL [Suspect]
     Indication: HYPERCHOLESTEROLAEMIA
     Dosage: 20 MG, QD
     Route: 048
     Dates: start: 20091012
  2. ATENOLOL [Concomitant]
     Route: 048
  3. ADANCOR [Concomitant]
     Route: 048
  4. AMLODIPINE [Concomitant]
     Route: 048
  5. PLAVIX [Concomitant]
     Route: 048
  6. ESOMEPRAZOLE MAGNESIUM [Concomitant]
     Route: 048

REACTIONS (4)
  - BEDRIDDEN [None]
  - CONNECTIVE TISSUE DISORDER [None]
  - MYALGIA [None]
  - PAIN IN EXTREMITY [None]
